FAERS Safety Report 16402805 (Version 1)
Quarter: 2019Q2

REPORT INFORMATION
  Report Type: Spontaneous
  Country: CZ (occurrence: CZ)
  Receive Date: 20190607
  Receipt Date: 20190607
  Transmission Date: 20190711
  Serious: Yes (Hospitalization)
  Sender: FDA-Public Use
  Company Number: CZ-SA-2019SA153773

PATIENT
  Age: 46 Year
  Sex: Female
  Weight: 103.7 kg

DRUGS (7)
  1. PRALUENT [Suspect]
     Active Substance: ALIROCUMAB
     Dosage: UNK, UNK
  2. TULIP [FLURBIPROFEN] [Concomitant]
     Dosage: UNK UNK, UNK
  3. PRENEWEL [Concomitant]
     Active Substance: INDAPAMIDE\PERINDOPRIL ERBUMINE
     Dosage: UNK UNK, UNK
  4. BETALOC [METOPROLOL TARTRATE] [Concomitant]
     Active Substance: METOPROLOL TARTRATE
     Dosage: UNK UNK, UNK
  5. GODASAL [Concomitant]
     Active Substance: ASPIRIN\GLYCINE
     Dosage: UNK UNK, UNK
  6. LEXAURIN [Concomitant]
     Active Substance: BROMAZEPAM
     Dosage: UNK UNK, UNK
  7. NOCLAUD [Concomitant]
     Active Substance: CILOSTAZOL
     Dosage: UNK UNK, UNK

REACTIONS (1)
  - Peripheral arterial occlusive disease [Recovered/Resolved]

NARRATIVE: CASE EVENT DATE: 20180903
